FAERS Safety Report 9156006 (Version 1)
Quarter: 2013Q1

REPORT INFORMATION
  Report Type: Spontaneous
  Country: US (occurrence: US)
  Receive Date: 20130311
  Receipt Date: 20130311
  Transmission Date: 20140127
  Serious: Yes (Other)
  Sender: FDA-Public Use
  Company Number: US-BAYER-2013-028906

PATIENT
  Sex: Female

DRUGS (3)
  1. ALEVE CAPLET/TABLET,MIDOL EXTENDED RELIEF CAPLET [Suspect]
     Dosage: 2 DF, UNK
     Route: 048
  2. DIURETICS [Concomitant]
  3. STEROID SHOTS [Concomitant]

REACTIONS (2)
  - Faeces discoloured [Not Recovered/Not Resolved]
  - Incorrect drug administration duration [None]
